FAERS Safety Report 15339402 (Version 1)
Quarter: 2018Q3

REPORT INFORMATION
  Report Type: Spontaneous
  Country: GB (occurrence: GB)
  Receive Date: 20180831
  Receipt Date: 20180831
  Transmission Date: 20181010
  Serious: Yes (Other)
  Sender: FDA-Public Use
  Company Number: PHHY2018GB085454

PATIENT
  Age: 69 Year
  Sex: Male
  Weight: 95 kg

DRUGS (2)
  1. CLARITHROMYCIN. [Suspect]
     Active Substance: CLARITHROMYCIN
     Indication: PRODUCT USED FOR UNKNOWN INDICATION
     Dosage: 2 DF, QD
     Route: 048
     Dates: start: 20180721, end: 20180722
  2. FLIXONASE [Suspect]
     Active Substance: FLUTICASONE PROPIONATE
     Indication: PRODUCT USED FOR UNKNOWN INDICATION
     Dosage: 6 GTT, UNK (TO BE USED IN THE MORNING IN EACH NOSTRIL)
     Route: 045
     Dates: start: 20180721, end: 20180722

REACTIONS (4)
  - Pyrexia [Recovered/Resolved]
  - Sensory loss [Recovered/Resolved]
  - Malaise [Recovered/Resolved]
  - Sensory disturbance [Recovered/Resolved]

NARRATIVE: CASE EVENT DATE: 20180721
